FAERS Safety Report 9335048 (Version 2)
Quarter: 2013Q2

REPORT INFORMATION
  Report Type: Spontaneous
  Country: DK (occurrence: DK)
  Receive Date: 20130606
  Receipt Date: 20130611
  Transmission Date: 20140414
  Serious: Yes (Hospitalization, Other)
  Sender: FDA-Public Use
  Company Number: PHHY2013DK055057

PATIENT
  Age: 74 Year
  Sex: Female

DRUGS (8)
  1. ALLOPURINOL [Suspect]
  2. AMLODIPINE [Concomitant]
  3. MAGNESIUM OXIDE [Concomitant]
  4. ESTROGEN [Concomitant]
  5. WARFARIN [Concomitant]
  6. SOLIFENACIN [Concomitant]
  7. METOPROLOL [Concomitant]
  8. FUROSEMIDE [Concomitant]

REACTIONS (13)
  - Drug reaction with eosinophilia and systemic symptoms [Recovered/Resolved]
  - Rash maculo-papular [Recovered/Resolved]
  - Pruritus [Recovered/Resolved]
  - Pyrexia [Recovered/Resolved]
  - Confusional state [Recovered/Resolved]
  - Malaise [Recovered/Resolved]
  - Erythema [Recovered/Resolved]
  - Oedema [Recovered/Resolved]
  - Scab [Recovered/Resolved]
  - Alanine aminotransferase increased [Recovered/Resolved]
  - Blood creatinine increased [Recovered/Resolved]
  - Lymphadenopathy [Recovered/Resolved]
  - Blood bilirubin increased [Recovered/Resolved]
